FAERS Safety Report 15226134 (Version 1)
Quarter: 2018Q3

REPORT INFORMATION
  Report Type: Spontaneous
  Country: US (occurrence: US)
  Receive Date: 20180801
  Receipt Date: 20180801
  Transmission Date: 20181010
  Serious: No
  Sender: FDA-Public Use
  Company Number: US-HORIZON-KRY-0218-2018

PATIENT
  Age: 59 Year
  Sex: Male

DRUGS (1)
  1. KRYSTEXXA [Suspect]
     Active Substance: PEGLOTICASE
     Indication: PRODUCT USED FOR UNKNOWN INDICATION
     Dosage: EVERY 2 WEEKS
     Dates: start: 20180713

REACTIONS (4)
  - Rash generalised [Not Recovered/Not Resolved]
  - Rash pruritic [Not Recovered/Not Resolved]
  - Erythema [Not Recovered/Not Resolved]
  - Blood uric acid increased [Unknown]

NARRATIVE: CASE EVENT DATE: 20180713
